FAERS Safety Report 6594107-0 (Version None)
Quarter: 2010Q1

REPORT INFORMATION
  Report Type: 
  Country: None (occurrence: None)
  Receive Date: 20100222
  Receipt Date: 20100211
  Transmission Date: 20100710
  Serious: Yes (Life-Threatening, Hospitalization)
  Sender: FDA-Public Use
  Company Number: DE-ROCHE-680662

PATIENT
  Sex: Male
  Weight: 75.6 kg

DRUGS (5)
  1. CAPECITABINE [Suspect]
     Indication: RECTAL CANCER
     Dosage: MOST RECENT DOSE BEFORE SAE: 11 JAN 2010, BID ON DAY 1 AND DAY 15 OF 3 WEEK CYCLE.
     Route: 048
     Dates: start: 20090831
  2. OXALIPLATIN [Suspect]
     Indication: RECTAL CANCER
     Dosage: MOST RECENT DOSE BEFORE SAE: 11 JAN 2010, FREQUENCY: ON DAY 1 OF 3 WEEK CYCLE.
     Route: 042
     Dates: start: 20090831
  3. METAMIZOL [Concomitant]
     Indication: PAIN
     Dosage: DOSE: 4X 40
     Route: 048
     Dates: start: 20091221
  4. ZOLPIDEMTARTRAT [Concomitant]
     Indication: INSOMNIA
     Dosage: DOSE: 10MG/ DAY
     Route: 048
     Dates: start: 20091221
  5. TAMSULOSIN [Concomitant]
     Indication: MICTURITION DISORDER
     Dosage: DOSE: 0.4MG/DAY
     Route: 048
     Dates: start: 20090821

REACTIONS (6)
  - DIARRHOEA [None]
  - HIDRADENITIS [None]
  - INTESTINAL ANASTOMOSIS COMPLICATION [None]
  - MAJOR DEPRESSION [None]
  - MUCOSAL INFLAMMATION [None]
  - SUICIDAL IDEATION [None]
